FAERS Safety Report 7022547-4 (Version None)
Quarter: 2010Q3

REPORT INFORMATION
  Report Type: 
  Country: None (occurrence: None)
  Receive Date: 20100930
  Receipt Date: 20100928
  Transmission Date: 20110219
  Serious: Yes (Hospitalization)
  Sender: FDA-Public Use
  Company Number: CN-PFIZER INC-2010122638

PATIENT
  Age: 58 Year
  Sex: Female

DRUGS (2)
  1. MEDROL [Suspect]
     Indication: NEPHROTIC SYNDROME
     Dosage: 12 TABLETS DAILY
     Route: 048
     Dates: start: 20100101
  2. MEDROL [Suspect]
     Dosage: 5 TABLETS DAILY
     Route: 048
     Dates: start: 20100101

REACTIONS (2)
  - GENERALISED OEDEMA [None]
  - MEDICATION ERROR [None]
